FAERS Safety Report 6889886-9 (Version None)
Quarter: 2010Q3

REPORT INFORMATION
  Report Type: 
  Country: None (occurrence: None)
  Receive Date: 20100730
  Receipt Date: 20080602
  Transmission Date: 20110219
  Serious: No
  Sender: FDA-Public Use
  Company Number: US-PFIZER INC-2008046740

PATIENT
  Age: 53 Year
  Sex: Male

DRUGS (3)
  1. LIPITOR [Suspect]
     Indication: BLOOD CHOLESTEROL ABNORMAL
     Route: 048
  2. LIPITOR [Suspect]
     Indication: BLOOD CHOLESTEROL
  3. GUAJANAL [Suspect]
     Indication: INFLUENZA
     Route: 048
     Dates: start: 20080416, end: 20080416

REACTIONS (1)
  - VOMITING [None]
